FAERS Safety Report 17857832 (Version 1)
Quarter: 2020Q2

REPORT INFORMATION
  Report Type: Spontaneous
  Country: US (occurrence: US)
  Receive Date: 20200604
  Receipt Date: 20200604
  Transmission Date: 20200714
  Serious: Yes (Other)
  Sender: FDA-Public Use
  Company Number: US-REGENERON PHARMACEUTICALS, INC.-2020-40998

PATIENT

DRUGS (1)
  1. AFLIBERCEPT IAI [Suspect]
     Active Substance: AFLIBERCEPT
     Indication: NEOVASCULAR AGE-RELATED MACULAR DEGENERATION
     Dosage: MONTHLY OU
     Route: 031

REACTIONS (3)
  - Retinal oedema [Unknown]
  - Maculopathy [Unknown]
  - Visual acuity reduced [Unknown]
